FAERS Safety Report 4725085-4 (Version None)
Quarter: 2005Q3

REPORT INFORMATION
  Report Type: 
  Country: None (occurrence: None)
  Receive Date: 20050725
  Receipt Date: 20050711
  Transmission Date: 20060218
  Serious: Yes (Death)
  Sender: FDA-Public Use
  Company Number: 2004AP000550

PATIENT
  Age: 19 Year
  Sex: Male
  Weight: 65.7716 kg

DRUGS (3)
  1. PAROXETINE HCL TABLETS (20 MG) [Suspect]
     Indication: ANXIETY DISORDER
     Dosage: 20 MG; QD; PO
     Route: 048
  2. PAROXETINE HCL TABLETS (20 MG) [Suspect]
     Indication: MAJOR DEPRESSION
     Dosage: 20 MG; QD; PO
     Route: 048
  3. PAROXETINE HCL TABLETS (20 MG) [Suspect]
     Indication: SOCIAL PHOBIA
     Dosage: 20 MG; QD; PO
     Route: 048

REACTIONS (7)
  - BLOOD BILIRUBIN INCREASED [None]
  - BLOOD CAFFEINE [None]
  - DRUG DOSE OMISSION [None]
  - DRUG LEVEL INCREASED [None]
  - DRUG TOXICITY [None]
  - INJURY ASPHYXIATION [None]
  - METABOLIC DISORDER [None]
